FAERS Safety Report 21556722 (Version 1)
Quarter: 2022Q4

REPORT INFORMATION
  Report Type: Spontaneous
  Country: US (occurrence: None)
  Receive Date: 20221103
  Receipt Date: 20221103
  Transmission Date: 20230113
  Serious: No
  Sender: FDA-Public Use
  Company Number: None

PATIENT
  Age: 75 Month
  Sex: Female
  Weight: 68.04 kg

DRUGS (2)
  1. SULFAMETHOXAZOLE\TRIMETHOPRIM [Suspect]
     Active Substance: SULFAMETHOXAZOLE\TRIMETHOPRIM
     Indication: Therapeutic procedure
     Dosage: OTHER QUANTITY : S = 20 PILLS P= 10;?FREQUENCY : DAILY;?
  2. PHENAZOPYRIDINE [Suspect]
     Active Substance: PHENAZOPYRIDINE

REACTIONS (5)
  - Abdominal pain [None]
  - Calculus urethral [None]
  - Dehydration [None]
  - Bacterial infection [None]
  - Drug hypersensitivity [None]

NARRATIVE: CASE EVENT DATE: 20021013
